FAERS Safety Report 8414111-7 (Version None)
Quarter: 2012Q2

REPORT INFORMATION
  Report Type: 
  Country: None (occurrence: None)
  Receive Date: 20120323
  Receipt Date: 20111209
  Transmission Date: 20120825
  Serious: Yes (Other)
  Sender: FDA-Public Use
  Company Number: 163-21880-11121612

PATIENT
  Age: 79 Year
  Sex: Male
  Weight: 79.8331 kg

DRUGS (3)
  1. REVLIMID [Suspect]
     Indication: MYELODYSPLASTIC SYNDROME
     Dosage: 15 MG, DAILY FOR 28 DAYS, PO
     Route: 048
     Dates: start: 20111017
  2. EXJADE (DEFERASIROX) (500 MILLIGRAM, TABLETS) [Concomitant]
  3. TRANSFUSION (BLOOD AND RELATED PRODUCTS) (UNKNOWN) [Concomitant]

REACTIONS (3)
  - DIARRHOEA [None]
  - FULL BLOOD COUNT DECREASED [None]
  - OEDEMA [None]
